FAERS Safety Report 8267949-3 (Version None)
Quarter: 2012Q2

REPORT INFORMATION
  Report Type: 
  Country: None (occurrence: None)
  Receive Date: 20120409
  Receipt Date: 20120329
  Transmission Date: 20120825
  Serious: Yes (Other)
  Sender: FDA-Public Use
  Company Number: PHHY2011DE68765

PATIENT
  Sex: Male

DRUGS (17)
  1. ACTRAPHANE [Concomitant]
     Dosage: AT EVENING 6 IU
     Dates: start: 20110809, end: 20110809
  2. ACTRAPHANE [Concomitant]
     Dates: start: 20110919, end: 20110919
  3. ACTRAPHANE [Concomitant]
     Dates: start: 20111018, end: 20111018
  4. APIDRA [Concomitant]
     Dates: start: 20111121, end: 20111121
  5. ACTRAPHANE [Concomitant]
     Dates: start: 20111101, end: 20111101
  6. LANTUS [Concomitant]
     Dates: start: 20111021, end: 20111021
  7. TASIGNA [Suspect]
     Dosage: 1 DF IN THE MORNING AND 1 DF IN THE EVENING
     Route: 048
     Dates: start: 20110801, end: 20110801
  8. LANTUS [Concomitant]
     Dosage: 20 IU, AT EVENING
     Dates: start: 20110803, end: 20110803
  9. LANTUS [Concomitant]
     Dates: start: 20111112, end: 20111112
  10. APIDRA [Concomitant]
     Dates: start: 20111112, end: 20111112
  11. ACTRAPID [Concomitant]
  12. TASIGNA [Suspect]
     Indication: CHRONIC MYELOID LEUKAEMIA
     Dosage: 2 DF IN THE MORNING AND 2 DF IN THE EVENING
     Route: 048
     Dates: start: 20110723
  13. LANTUS [Concomitant]
     Dosage: 20 IU, AT EVENING
     Dates: start: 20110822, end: 20110822
  14. PROTAPHANE [Concomitant]
     Dates: start: 20111121, end: 20111121
  15. ACTRAPHANE [Concomitant]
     Dates: start: 20111021, end: 20111021
  16. GLIMEPIRIDE [Concomitant]
     Indication: DIABETES MELLITUS
     Dosage: 11/2 DF IN MORNING AND 1DF IN EVENING
     Route: 048
  17. ACTRAPHANE [Concomitant]
     Dosage: AFTER BREAKFAST 6 IU
     Dates: start: 20110812, end: 20110812

REACTIONS (25)
  - JOINT STIFFNESS [None]
  - ULCERATIVE KERATITIS [None]
  - DIABETES MELLITUS [None]
  - BACK PAIN [None]
  - BALANCE DISORDER [None]
  - ASTHENIA [None]
  - LIPASE INCREASED [None]
  - DYSPNOEA [None]
  - MOBILITY DECREASED [None]
  - BRAIN NATRIURETIC PEPTIDE INCREASED [None]
  - ABDOMINAL PAIN [None]
  - FATIGUE [None]
  - SOMNOLENCE [None]
  - WEIGHT DECREASED [None]
  - VISUAL IMPAIRMENT [None]
  - MUSCULAR WEAKNESS [None]
  - PSYCHOMOTOR SKILLS IMPAIRED [None]
  - BLOOD GLUCOSE INCREASED [None]
  - NEUROPATHY PERIPHERAL [None]
  - PIGMENTATION DISORDER [None]
  - DIZZINESS [None]
  - KERATITIS [None]
  - HEART RATE IRREGULAR [None]
  - GENERAL PHYSICAL HEALTH DETERIORATION [None]
  - VARICOSE VEIN [None]
